FAERS Safety Report 25493265 (Version 1)
Quarter: 2025Q2

REPORT INFORMATION
  Report Type: Spontaneous
  Country: US (occurrence: US)
  Receive Date: 20250630
  Receipt Date: 20250630
  Transmission Date: 20250717
  Serious: Yes (Other)
  Sender: COOPERSURGICAL
  Company Number: US-COOPERSURGICAL, INC.-2025CPS005199

PATIENT
  Sex: Female
  Weight: 96.599 kg

DRUGS (1)
  1. PARAGARD T 380A [Suspect]
     Active Substance: COPPER
     Route: 015
     Dates: start: 20090205

REACTIONS (17)
  - Reproductive complication associated with device [Not Recovered/Not Resolved]
  - Infertility female [Not Recovered/Not Resolved]
  - Intestinal resection [Recovered/Resolved]
  - Large intestine perforation [Recovered/Resolved]
  - Rectal perforation [Recovered/Resolved]
  - Complication of device removal [Recovered/Resolved]
  - Uterine perforation [Unknown]
  - Device dislocation [Recovered/Resolved]
  - Emotional disorder [Unknown]
  - Uterine scar [Not Recovered/Not Resolved]
  - Fallopian tube adhesion [Not Recovered/Not Resolved]
  - Adhesion [Unknown]
  - Back pain [Unknown]
  - Dyspareunia [Unknown]
  - Abnormal uterine bleeding [Unknown]
  - Abdominal pain [Unknown]
  - Muscle spasms [Unknown]

NARRATIVE: CASE EVENT DATE: 20090101
